FAERS Safety Report 8510634-0 (Version None)
Quarter: 2012Q3

REPORT INFORMATION
  Report Type: 
  Country: None (occurrence: None)
  Receive Date: 20120716
  Receipt Date: 20120706
  Transmission Date: 20120928
  Serious: No
  Sender: FDA-Public Use
  Company Number: US-BIOGENIDEC-2012BI024314

PATIENT
  Sex: Female

DRUGS (1)
  1. AVONEX [Suspect]
     Indication: MULTIPLE SCLEROSIS
     Route: 030
     Dates: start: 20080801, end: 20120610

REACTIONS (6)
  - OPTIC NEURITIS [None]
  - MULTIPLE SCLEROSIS [None]
  - MUSCULOSKELETAL DISORDER [None]
  - HYPOAESTHESIA [None]
  - GAIT DISTURBANCE [None]
  - MUSCULAR WEAKNESS [None]
